FAERS Safety Report 20780725 (Version 5)
Quarter: 2022Q3

REPORT INFORMATION
  Report Type: Report from Study
  Country: US (occurrence: US)
  Receive Date: 20220504
  Receipt Date: 20220701
  Transmission Date: 20221027
  Serious: Yes (Other)
  Sender: FDA-Public Use
  Company Number: US-BIOGEN-2017BI00466784

PATIENT
  Age: 27 Year
  Sex: Female
  Weight: 97.610 kg

DRUGS (25)
  1. TYSABRI [Suspect]
     Active Substance: NATALIZUMAB
     Indication: Relapsing-remitting multiple sclerosis
     Route: 050
     Dates: start: 20170103
  2. TYSABRI [Suspect]
     Active Substance: NATALIZUMAB
     Dosage: INFUSE 15 MILLILITERS (300 MG) DILUTED IN 100 ML OF 0.9 % NACL OVER 1HOUR(S)
     Route: 050
     Dates: start: 20170103
  3. TYSABRI [Suspect]
     Active Substance: NATALIZUMAB
     Dosage: INFUSED OVER 1 HOUR
     Route: 050
     Dates: start: 20170109
  4. ACYCLOVIR [Concomitant]
     Active Substance: ACYCLOVIR
     Indication: Product used for unknown indication
     Route: 050
  5. ADDERALL [Concomitant]
     Active Substance: AMPHETAMINE ASPARTATE\AMPHETAMINE SULFATE\DEXTROAMPHETAMINE SACCHARATE\DEXTROAMPHETAMINE SULFATE
     Indication: Cognitive disorder
     Dosage: BEFORE BREAKFAST AND AT 2 PM
     Route: 050
  6. AIMOVIG [Concomitant]
     Active Substance: ERENUMAB-AOOE
     Indication: Migraine
     Dosage: INJECT 1 MILLIMETER IN THE ABDOMEN, THIGH OR OUTER AREA OF UPPER ARM
     Route: 050
  7. BACLOFEN [Concomitant]
     Active Substance: BACLOFEN
     Indication: Pain
     Route: 050
  8. collagen plus vitamin c [Concomitant]
     Indication: Product used for unknown indication
     Route: 050
  9. DICLOFENAC [Concomitant]
     Active Substance: DICLOFENAC
     Indication: Product used for unknown indication
     Dosage: 1% GEL
     Route: 050
  10. GABAPENTIN [Concomitant]
     Active Substance: GABAPENTIN
     Indication: Pain
     Route: 050
  11. LACTATED RINGERS SOLUTION [Concomitant]
     Active Substance: CALCIUM CHLORIDE\POTASSIUM CHLORIDE\SODIUM CHLORIDE\SODIUM LACTATE
     Indication: Product used for unknown indication
     Route: 050
  12. LIDOCAINE [Concomitant]
     Active Substance: LIDOCAINE
     Indication: Product used for unknown indication
     Dosage: APPLY 1 PATCH
     Route: 050
  13. LINZESS [Concomitant]
     Active Substance: LINACLOTIDE
     Indication: Product used for unknown indication
     Dosage: TAKE 1 CAPSULE (290 MCG) SPRINKLE ENTIRE CONTENTS ON SMALL AMOUNT APPLESAUCE TAKE IMMEDIATELY BY ...
     Route: 050
  14. MAXALT [Concomitant]
     Active Substance: RIZATRIPTAN BENZOATE
     Indication: Migraine
     Dosage: ONCE MAY REPEAT AT 2 HOUR INTERVALS; DO NOT EXCEED 30 MG IN 24 HOURS
     Route: 050
  15. CANNABIS SATIVA SUBSP. INDICA TOP [Concomitant]
     Active Substance: CANNABIS SATIVA SUBSP. INDICA TOP
     Indication: Product used for unknown indication
     Route: 050
  16. MIRALAX [Concomitant]
     Active Substance: POLYETHYLENE GLYCOL 3350
     Indication: Product used for unknown indication
     Route: 050
  17. OMEPRAZOLE [Concomitant]
     Active Substance: OMEPRAZOLE
     Indication: Product used for unknown indication
     Dosage: BEFORE A MEAL
     Route: 050
  18. ONDANSETRON HCL [Concomitant]
     Active Substance: ONDANSETRON HYDROCHLORIDE
     Indication: Product used for unknown indication
     Dosage: 1 TABLET 1-2 HOURS BEFORE RADIATION. WITH ADDITIONAL DOSES EVERY 8 HOURS AFTER THE FIRST DOSE FOR...
     Route: 050
  19. PRIMIDONE [Concomitant]
     Active Substance: PRIMIDONE
     Indication: Seizure
     Route: 050
  20. PROAIR HFA [Concomitant]
     Active Substance: ALBUTEROL SULFATE
     Indication: Product used for unknown indication
     Dosage: INHALE 1 - 2 PUFFS (90 - 180 MCG) BY INHALATION ROUTE EVERY 4 HOURS AS NEEDED
     Route: 050
  21. SYMBICORT [Concomitant]
     Active Substance: BUDESONIDE\FORMOTEROL FUMARATE DIHYDRATE
     Indication: Product used for unknown indication
     Dosage: 2 TIMES AS PER DAY IN THE MORNING AND EVENING
     Route: 050
  22. TIZANIDINE [Concomitant]
     Active Substance: TIZANIDINE
     Indication: Product used for unknown indication
     Dosage: NOT TO EXCEED 3 DOSES IN 24 HOURS
     Route: 050
  23. TRAZODONE [Concomitant]
     Active Substance: TRAZODONE HYDROCHLORIDE
     Indication: Product used for unknown indication
     Route: 050
  24. TYLENOL PM [Concomitant]
     Active Substance: ACETAMINOPHEN\DIPHENHYDRAMINE
     Indication: Product used for unknown indication
     Dosage: W CODEINE
     Route: 050
  25. VENLAFAXINE HYDROCHLORIDE [Concomitant]
     Active Substance: VENLAFAXINE HYDROCHLORIDE
     Indication: Product used for unknown indication
     Dosage: WITH FOOD
     Route: 050

REACTIONS (21)
  - Blindness [Recovered/Resolved]
  - Uterine leiomyoma [Not Recovered/Not Resolved]
  - Uterine haemorrhage [Recovered/Resolved]
  - Autoimmune disorder [Recovered/Resolved]
  - Anaemia [Not Recovered/Not Resolved]
  - Multiple sclerosis relapse [Recovered/Resolved]
  - Memory impairment [Recovered/Resolved with Sequelae]
  - Spinal disorder [Not Recovered/Not Resolved]
  - Communication disorder [Recovered/Resolved with Sequelae]
  - Astigmatism [Recovered/Resolved]
  - Asthenia [Recovered/Resolved]
  - Syncope [Unknown]
  - Postural orthostatic tachycardia syndrome [Unknown]
  - Device dislocation [Unknown]
  - Vision blurred [Unknown]
  - Diplopia [Unknown]
  - Polyp [Unknown]
  - Mass [Unknown]
  - Neurogenic bladder [Unknown]
  - Impaired gastric emptying [Unknown]
  - Fatigue [Unknown]

NARRATIVE: CASE EVENT DATE: 20170201
